FAERS Safety Report 14325542 (Version 1)
Quarter: 2017Q4

REPORT INFORMATION
  Report Type: Spontaneous
  Country: FI (occurrence: FI)
  Receive Date: 20171226
  Receipt Date: 20171226
  Transmission Date: 20180321
  Serious: Yes (Other)
  Sender: FDA-Public Use
  Company Number: PHHY2017FI169433

PATIENT
  Age: 68 Year

DRUGS (8)
  1. LEVODOPA [Suspect]
     Active Substance: LEVODOPA
     Indication: PARKINSONISM
     Route: 065
  2. SELEGILINE [Suspect]
     Active Substance: SELEGILINE
     Indication: PARKINSONISM
     Route: 065
  3. PRAMIPEXOLE. [Suspect]
     Active Substance: PRAMIPEXOLE
     Dosage: 1143 MG (LEVODOPA EQUIVALENT DAILY DOSE)
     Route: 065
  4. LEVODOPA [Suspect]
     Active Substance: LEVODOPA
     Indication: PARKINSON^S DISEASE
     Dosage: 105 MG (LEVODOPA EQUIVALENT DAILY DOSE)
     Route: 065
  5. ENTACAPONE. [Suspect]
     Active Substance: ENTACAPONE
     Indication: PARKINSONISM
     Route: 065
  6. PRAMIPEXOLE. [Suspect]
     Active Substance: PRAMIPEXOLE
     Indication: PARKINSONISM
     Route: 065
  7. PRAMIPEXOLE. [Suspect]
     Active Substance: PRAMIPEXOLE
     Dosage: 105 MG  (LEVODOPA EQUIVALENT DAILY DOSE)
     Route: 065
  8. LEVODOPA [Suspect]
     Active Substance: LEVODOPA
     Dosage: 1143 MG (LEVODOPA EQUIVALENT DAILY DOSE)
     Route: 065

REACTIONS (1)
  - Hallucination, visual [Unknown]
